FAERS Safety Report 8529022-6 (Version None)
Quarter: 2012Q3

REPORT INFORMATION
  Report Type: 
  Country: None (occurrence: None)
  Receive Date: 20120723
  Receipt Date: 20120720
  Transmission Date: 20120928
  Serious: No
  Sender: FDA-Public Use
  Company Number: US-PFIZER INC-2012109160

PATIENT
  Sex: Female

DRUGS (2)
  1. CHANTIX [Suspect]
     Dosage: UNK
  2. CHANTIX [Suspect]
     Dosage: UNK
     Dates: start: 20120101, end: 20120601

REACTIONS (5)
  - DRUG INEFFECTIVE [None]
  - WEIGHT INCREASED [None]
  - IRRITABILITY [None]
  - AGITATION [None]
  - ABNORMAL DREAMS [None]
